FAERS Safety Report 22528289 (Version 1)
Quarter: 2023Q2

REPORT INFORMATION
  Report Type: Spontaneous
  Country: US (occurrence: US)
  Receive Date: 20230607
  Receipt Date: 20230607
  Transmission Date: 20230721
  Serious: Yes (Other)
  Sender: FDA-Public Use
  Company Number: US-AUROBINDO-AUR-APL-2023-040144

PATIENT
  Age: 62 Year
  Sex: Male

DRUGS (2)
  1. ADENOSINE [Suspect]
     Active Substance: ADENOSINE
     Indication: Coronary artery occlusion
     Dosage: 200 MILLIGRAM
     Route: 022
  2. NITROGLYCERIN [Suspect]
     Active Substance: NITROGLYCERIN
     Indication: Coronary artery occlusion
     Dosage: 600 MILLIGRAM
     Route: 022

REACTIONS (1)
  - Drug ineffective [Unknown]
